FAERS Safety Report 17421409 (Version 1)
Quarter: 2020Q1

REPORT INFORMATION
  Report Type: Report from Study
  Country: US (occurrence: US)
  Receive Date: 20200214
  Receipt Date: 20200214
  Transmission Date: 20200409
  Serious: Yes (Hospitalization, Other)
  Sender: FDA-Public Use
  Company Number: US-ACTELION-A-US2018-171798

PATIENT
  Age: 62 Year
  Sex: Female
  Weight: 102.04 kg

DRUGS (6)
  1. VELETRI [Suspect]
     Active Substance: EPOPROSTENOL
     Indication: PULMONARY HYPERTENSION
     Dosage: 14.2 NG/KG, PER MIN
     Route: 042
  2. VELETRI [Suspect]
     Active Substance: EPOPROSTENOL
     Dosage: 16.5 NG/KG, PER MIN
     Route: 042
  3. TADALAFIL. [Concomitant]
     Active Substance: TADALAFIL
  4. ELIQUIS [Concomitant]
     Active Substance: APIXABAN
  5. VELETRI [Suspect]
     Active Substance: EPOPROSTENOL
     Dosage: 9 NG/KG, PER MIN
     Route: 042
  6. VELETRI [Suspect]
     Active Substance: EPOPROSTENOL
     Dosage: 34.5 NG/KG, PER MIN
     Route: 042

REACTIONS (21)
  - Chest pain [Unknown]
  - Dyspnoea exertional [Unknown]
  - Decreased appetite [Unknown]
  - Nausea [Unknown]
  - Pain in jaw [Unknown]
  - Rheumatoid arthritis [Unknown]
  - Echocardiogram abnormal [Unknown]
  - Facial pain [Unknown]
  - Pain [Recovered/Resolved]
  - Weight decreased [Unknown]
  - Bone pain [Recovering/Resolving]
  - Dental caries [Unknown]
  - Catheter site discharge [Unknown]
  - Feeling abnormal [Unknown]
  - Chest discomfort [Unknown]
  - Flushing [Unknown]
  - Headache [Unknown]
  - Incorrect drug administration rate [Unknown]
  - Diarrhoea [Unknown]
  - Musculoskeletal stiffness [Recovered/Resolved]
  - Cough [Unknown]

NARRATIVE: CASE EVENT DATE: 201908
